FAERS Safety Report 5694943-9 (Version None)
Quarter: 2008Q2

REPORT INFORMATION
  Report Type: 
  Country: None (occurrence: None)
  Receive Date: 20080404
  Receipt Date: 20080403
  Transmission Date: 20081010
  Serious: Yes (Death)
  Sender: FDA-Public Use
  Company Number: US-ASTRAZENECA-2008UW06725

PATIENT
  Age: 42 Year
  Sex: Male

DRUGS (4)
  1. SEROQUEL [Suspect]
     Route: 048
  2. HALDOL [Concomitant]
  3. PRASISIN [Concomitant]
  4. VALIUM [Concomitant]

REACTIONS (1)
  - CARDIAC DEATH [None]
